FAERS Safety Report 11220829 (Version 1)
Quarter: 2015Q2

REPORT INFORMATION
  Report Type: Spontaneous
  Country: US (occurrence: None)
  Receive Date: 20150625
  Receipt Date: 20150625
  Transmission Date: 20150821
  Serious: No
  Sender: FDA-Public Use
  Company Number: None

PATIENT
  Age: 72 Year
  Sex: Female
  Weight: 112.49 kg

DRUGS (20)
  1. VITAMIN D [Concomitant]
     Active Substance: CHOLECALCIFEROL
  2. GARLIC. [Concomitant]
     Active Substance: GARLIC
  3. KELP [Concomitant]
     Active Substance: KELP
  4. FLAXSEED [Concomitant]
     Active Substance: FLAX SEED
  5. NUTRITIONAL SUPPLEMENTS [Concomitant]
     Active Substance: DIETARY SUPPLEMENT
  6. VITAMIN E [Concomitant]
     Active Substance: .ALPHA.-TOCOPHEROL
  7. CAPSICUM [Concomitant]
     Active Substance: CAPSICUM
  8. KENALOG [Suspect]
     Active Substance: TRIAMCINOLONE ACETONIDE
     Indication: TENDON RUPTURE
     Route: 014
     Dates: start: 20150526, end: 20150526
  9. POTASSIUM [Concomitant]
     Active Substance: POTASSIUM
  10. OMEGA-3 ACIDS [Concomitant]
     Active Substance: OMEGA-3 FATTY ACIDS
  11. MAGNESIUM [Concomitant]
     Active Substance: MAGNESIUM
  12. VITAMIN A [Concomitant]
     Active Substance: VITAMIN A
  13. VITAMINS WITH MINERALS [Concomitant]
     Active Substance: MINERALS\VITAMINS
  14. VITAMIN B COMPLEX [Concomitant]
     Active Substance: CYANOCOBALAMIN\DEXPANTHENOL\NIACINAMIDE\PYRIDOXINE HYDROCHLORIDE\RIBOFLAVIN 5^-PHOSPHATE SODIUM\THIAMINE HYDROCHLORIDE\VITAMIN B COMPLEX
  15. VITAMIN C [Concomitant]
     Active Substance: ASCORBIC ACID
  16. PROBIOTICS [Concomitant]
     Active Substance: PROBIOTICS NOS
  17. VITAMIN B12 [Concomitant]
     Active Substance: CYANOCOBALAMIN
  18. HERBS [Concomitant]
     Active Substance: HERBALS
  19. VANADYL SULFATE [Concomitant]
     Active Substance: VANADYL SULFATE
  20. PSYLLIUM [Concomitant]
     Active Substance: PLANTAGO SEED

REACTIONS (6)
  - Anorectal discomfort [None]
  - Paraesthesia [None]
  - Gastritis [None]
  - Tachycardia [None]
  - Blood pressure increased [None]
  - Infection [None]
